FAERS Safety Report 7166242-X (Version None)
Quarter: 2010Q4

REPORT INFORMATION
  Report Type: 
  Country: None (occurrence: None)
  Receive Date: 20101202
  Receipt Date: 20101116
  Transmission Date: 20110411
  Serious: Yes (Hospitalization)
  Sender: FDA-Public Use
  Company Number: 1000017502

PATIENT
  Age: 76 Year
  Sex: Male

DRUGS (8)
  1. ESCITALOPRAM [Suspect]
     Indication: DEPRESSION
     Dosage: 10 MG (10 MG,1 IN 1 D),ORAL
     Route: 048
     Dates: start: 20100101, end: 20101025
  2. ESCITALOPRAM [Suspect]
     Indication: DEPRESSION
     Dosage: 15 MG (15 MG,1 IN 1 D),ORAL
     Route: 048
     Dates: start: 20101026, end: 20101029
  3. OXAZEPAM [Suspect]
     Dosage: 20 MG (10 MG,2 IN 1 D),ORAL
     Route: 048
     Dates: start: 20101019, end: 20101029
  4. ZOLPIDEM TARTRATE [Suspect]
     Indication: INSOMNIA
     Dosage: 10 MG (10 MG,1 IN 1 D),ORAL
     Route: 048
     Dates: end: 20101029
  5. FUROSEMDE (FUROSEMIDE) [Concomitant]
  6. KARDEGIC (ACETYLSALICYLATE LYSINE) (ACETYLSALICYLATE LYSINE) [Concomitant]
  7. ATORVASTATIN CALCIUM [Concomitant]
  8. BISOPROLOL FUMARATE [Concomitant]

REACTIONS (4)
  - AKINESIA [None]
  - CONFUSIONAL STATE [None]
  - IATROGENIC INJURY [None]
  - TREMOR [None]
